FAERS Safety Report 7545205-6 (Version None)
Quarter: 2011Q2

REPORT INFORMATION
  Report Type: 
  Country: None (occurrence: None)
  Receive Date: 20110524
  Receipt Date: 20110210
  Transmission Date: 20111010
  Serious: No
  Sender: FDA-Public Use
  Company Number: 027295

PATIENT
  Sex: Male

DRUGS (1)
  1. CIMZIA [Suspect]
     Indication: CROHN'S DISEASE
     Dosage: (SUBCUTANEOUS)
     Route: 058
     Dates: start: 20110107

REACTIONS (6)
  - FATIGUE [None]
  - INCREASED APPETITE [None]
  - ABDOMINAL PAIN UPPER [None]
  - ABDOMINAL DISTENSION [None]
  - FLATULENCE [None]
  - SEDATION [None]
